FAERS Safety Report 24578868 (Version 2)
Quarter: 2024Q4

REPORT INFORMATION
  Report Type: Spontaneous
  Country: JP (occurrence: JP)
  Receive Date: 20241105
  Receipt Date: 20241125
  Transmission Date: 20250115
  Serious: Yes (Hospitalization, Other)
  Sender: ASTELLAS
  Company Number: JP-ASTELLAS-2024-AER-015176

PATIENT
  Age: 13 Year
  Sex: Female

DRUGS (5)
  1. XOSPATA [Suspect]
     Active Substance: GILTERITINIB
     Indication: Acute myeloid leukaemia
     Dosage: 40MG/DAY
     Route: 048
  2. XOSPATA [Suspect]
     Active Substance: GILTERITINIB
     Route: 048
  3. XOSPATA [Suspect]
     Active Substance: GILTERITINIB
     Dosage: 80MG/DAY
     Route: 048
  4. XOSPATA [Suspect]
     Active Substance: GILTERITINIB
     Dosage: 40MG/DAY
     Route: 048
  5. XOSPATA [Suspect]
     Active Substance: GILTERITINIB
     Dosage: 40MG/DAY
     Route: 048

REACTIONS (3)
  - Myelosuppression [Recovered/Resolved]
  - Blood creatine phosphokinase increased [Recovering/Resolving]
  - Off label use [Unknown]
